FAERS Safety Report 23466195 (Version 1)
Quarter: 2024Q1

REPORT INFORMATION
  Report Type: Other
  Country: US (occurrence: US)
  Receive Date: 20240201
  Receipt Date: 20240201
  Transmission Date: 20240410
  Serious: Yes (Other)
  Sender: FDA-Public Use
  Company Number: US-Bion-012575

PATIENT
  Age: 43 Year
  Sex: Female

DRUGS (1)
  1. SEVELAMER CARBONATE [Suspect]
     Active Substance: SEVELAMER CARBONATE
     Indication: Hyperphosphataemia

REACTIONS (6)
  - Acute lung injury [Unknown]
  - Diffuse alveolar damage [Unknown]
  - Aneurysm ruptured [Unknown]
  - Gastrointestinal necrosis [Unknown]
  - Aorto-oesophageal fistula [Unknown]
  - Gastrointestinal necrosis [Unknown]
